FAERS Safety Report 5520001-X (Version None)
Quarter: 2007Q4

REPORT INFORMATION
  Report Type: 
  Country: None (occurrence: None)
  Receive Date: 20071116
  Receipt Date: 20071113
  Transmission Date: 20080405
  Serious: Yes (Life-Threatening)
  Sender: FDA-Public Use
  Company Number: US-ASTRAZENECA-2007UW24010

PATIENT
  Age: 22364 Day
  Sex: Female

DRUGS (5)
  1. PULMICORT FLEXHALER [Suspect]
     Indication: ASTHMA
     Route: 055
     Dates: start: 20071006, end: 20071008
  2. ZANTAC [Concomitant]
     Indication: GASTROOESOPHAGEAL REFLUX DISEASE
     Route: 048
     Dates: start: 20070401
  3. ZYFLO [Concomitant]
     Indication: ASTHMA
     Route: 048
     Dates: start: 20060801
  4. PULMICORT RESPULES [Concomitant]
     Indication: ASTHMA
     Route: 055
     Dates: start: 20020101
  5. ALBUTEROL [Concomitant]
     Indication: ASTHMA

REACTIONS (2)
  - ASTHMA [None]
  - RESPIRATORY DISTRESS [None]
